FAERS Safety Report 25077658 (Version 1)
Quarter: 2025Q1

REPORT INFORMATION
  Report Type: Spontaneous
  Country: US (occurrence: US)
  Receive Date: 20250314
  Receipt Date: 20250314
  Transmission Date: 20250408
  Serious: No
  Sender: Kenvue
  Company Number: US-KENVUE-20250205637

PATIENT
  Age: 59 Year
  Sex: Male

DRUGS (1)
  1. MENS ROGAINE EXTRA STRENGTH [Suspect]
     Active Substance: MINOXIDIL
     Indication: Alopecia
     Route: 061
     Dates: start: 20250213

REACTIONS (3)
  - Application site dryness [Unknown]
  - Application site erythema [Unknown]
  - Application site pruritus [Unknown]

NARRATIVE: CASE EVENT DATE: 20250213
